FAERS Safety Report 8681057 (Version 2)
Quarter: 2013Q4

REPORT INFORMATION
  Report Type: Spontaneous
  Country: CA (occurrence: CA)
  Receive Date: 20120724
  Receipt Date: 20131031
  Transmission Date: 20140711
  Serious: Yes (Hospitalization, Other)
  Sender: FDA-Public Use
  Company Number: CA-009507513-1207CAN006619

PATIENT
  Age: 16 Year
  Sex: Female

DRUGS (4)
  1. CLARITIN ALLERGY + SINUS EXTRA STRENGTH?24 HOURS [Suspect]
     Indication: HYPERSENSITIVITY
  2. VALPROIC ACID [Concomitant]
  3. TOPAMAX [Concomitant]
  4. CAMPRAL [Concomitant]

REACTIONS (4)
  - Convulsion [Unknown]
  - Loss of consciousness [Recovered/Resolved]
  - Lethargy [Not Recovered/Not Resolved]
  - Apathy [Not Recovered/Not Resolved]
